FAERS Safety Report 18717255 (Version 2)
Quarter: 2021Q1

REPORT INFORMATION
  Report Type: Spontaneous
  Country: IN (occurrence: IN)
  Receive Date: 20210108
  Receipt Date: 20210319
  Transmission Date: 20210419
  Serious: Yes (Other)
  Sender: FDA-Public Use
  Company Number: IN-PFIZER INC-2021008866

PATIENT
  Age: 63 Year
  Sex: Female
  Weight: 42 kg

DRUGS (10)
  1. DACOMITINIB [Suspect]
     Active Substance: DACOMITINIB
     Dosage: 45 MG, 1X/DAY
     Route: 048
     Dates: start: 20200116
  2. HYDROCORTISONE. [Concomitant]
     Active Substance: HYDROCORTISONE
     Indication: RASH
     Dosage: UNK
     Route: 061
  3. DOXYCYCLINE. [Concomitant]
     Active Substance: DOXYCYCLINE
     Dosage: 100 MG, 2X/DAY
  4. ANOVATE [BECLOMETASONE DIPROPIONATE;LIDOCAINE HYDROCHLORIDE;PHENYLEPHR [Concomitant]
     Route: 061
  5. DACOMITINIB [Suspect]
     Active Substance: DACOMITINIB
     Dosage: 45 MG, 1X/DAY (15 MG, 3 TABLETS ONCE DAILY), 1 HR BEFORE MEALS
     Route: 048
     Dates: start: 20201124
  6. LOPERAMIDE [Concomitant]
     Active Substance: LOPERAMIDE
     Dosage: 2 MG, AS NEEDED
  7. MEGASTY [Concomitant]
     Dosage: 160 MG, 2X/DAY
  8. DACOMITINIB [Suspect]
     Active Substance: DACOMITINIB
     Indication: LUNG CANCER METASTATIC
     Dosage: 45 MG, DAILY
     Dates: start: 20200116, end: 2020
  9. FAMOTIDINE. [Concomitant]
     Active Substance: FAMOTIDINE
     Indication: HYPERCHLORHYDRIA
     Dosage: 20 MG
  10. CREMAFFIN PLUS [Concomitant]
     Indication: CONSTIPATION
     Dosage: 15 ML, 1X/DAY BEDTIME

REACTIONS (13)
  - Carcinoembryonic antigen increased [Unknown]
  - Pulmonary infarction [Unknown]
  - Chest pain [Unknown]
  - Neoplasm progression [Unknown]
  - Benign neoplasm of adrenal gland [Unknown]
  - Cerebral ischaemia [Unknown]
  - Decreased appetite [Unknown]
  - Dyspnoea [Unknown]
  - Pulmonary embolism [Unknown]
  - Deep vein thrombosis [Unknown]
  - Mucosal inflammation [Unknown]
  - Palmar-plantar erythrodysaesthesia syndrome [Unknown]
  - Pleural effusion [Unknown]

NARRATIVE: CASE EVENT DATE: 20200213
